FAERS Safety Report 4283307-0 (Version None)
Quarter: 2004Q1

REPORT INFORMATION
  Report Type: 
  Country: None (occurrence: None)
  Receive Date: 20040129
  Receipt Date: 20040120
  Transmission Date: 20041129
  Serious: Yes (Other)
  Sender: FDA-Public Use
  Company Number: 2003121499

PATIENT
  Age: 60 Year
  Sex: Female

DRUGS (7)
  1. NORVASC [Suspect]
     Indication: HYPERTENSION
     Dosage: 5 MG (DAILY), ORAL
     Route: 048
     Dates: start: 20031010, end: 20031108
  2. ETIZOLAM (ETIZOLAM) [Suspect]
     Indication: ILL-DEFINED DISORDER
     Dosage: ORAL
     Route: 048
  3. FOMINOBEN HYDROCHLORIDE (FOMINOBEN HYDROCHLORIDE) [Concomitant]
  4. CARBOCISTEINE (CARBOCISTEINE) [Concomitant]
  5. CANDESARTAN CILEXETIL (CANDESARTAN CILEXETIL) [Concomitant]
  6. DICLOFENAC SODIUM [Concomitant]
  7. METOPROLOL TARTRATE [Concomitant]

REACTIONS (1)
  - HEPATIC FUNCTION ABNORMAL [None]
